FAERS Safety Report 5745295-7 (Version None)
Quarter: 2008Q2

REPORT INFORMATION
  Report Type: 
  Country: None (occurrence: None)
  Receive Date: 20080520
  Receipt Date: 20080514
  Transmission Date: 20081010
  Serious: Yes (Other)
  Sender: FDA-Public Use
  Company Number: APP200800381

PATIENT
  Age: 81 Year
  Sex: Male
  Weight: 84 kg

DRUGS (3)
  1. HEPARIN SODIUM INJECTION [Suspect]
     Indication: CORONARY ARTERY BYPASS
     Dosage: 25000 USP UNITS, GIVEN AT 0910, INTRAVENOUS; 8,000 USP UNITS, GIVEN AT 0928, INTRAVENOUS
     Route: 042
     Dates: start: 20080409, end: 20080409
  2. HEPARIN SODIUM INJECTION [Suspect]
     Indication: CORONARY ARTERY BYPASS
     Dosage: 25000 USP UNITS, GIVEN AT 0910, INTRAVENOUS; 8,000 USP UNITS, GIVEN AT 0928, INTRAVENOUS
     Route: 042
     Dates: start: 20080409, end: 20080409
  3. HEPARIN SODIUM INJECTION [Suspect]

REACTIONS (1)
  - DRUG EFFECT DECREASED [None]
